FAERS Safety Report 22004923 (Version 7)
Quarter: 2024Q1

REPORT INFORMATION
  Report Type: Spontaneous
  Country: US (occurrence: US)
  Receive Date: 20230217
  Receipt Date: 20240220
  Transmission Date: 20240410
  Serious: No
  Sender: FDA-Public Use
  Company Number: US-PFIZER INC-PV202300030222

PATIENT
  Age: 86 Year
  Sex: Male

DRUGS (2)
  1. BRAFTOVI [Suspect]
     Active Substance: ENCORAFENIB
     Indication: Plasma cell myeloma
     Dosage: 450 MG (6 X 75 MG CAPSULES), 1X/DAY
     Route: 048
  2. MEKTOVI [Suspect]
     Active Substance: BINIMETINIB
     Indication: Plasma cell myeloma
     Dosage: 45 MG (3 X 15 MG TABLETS), 2X/DAY
     Route: 048

REACTIONS (11)
  - Neoplasm progression [Unknown]
  - Diarrhoea [Unknown]
  - Pruritus [Unknown]
  - Constipation [Unknown]
  - Depression [Unknown]
  - Decreased appetite [Unknown]
  - Visual impairment [Unknown]
  - Asthenia [Unknown]
  - Fall [Unknown]
  - Hypoacusis [Unknown]
  - Off label use [Unknown]
